FAERS Safety Report 16341678 (Version 1)
Quarter: 2019Q2

REPORT INFORMATION
  Report Type: Spontaneous
  Country: HR (occurrence: HR)
  Receive Date: 20190522
  Receipt Date: 20190522
  Transmission Date: 20190711
  Serious: Yes (Hospitalization, Other)
  Sender: FDA-Public Use
  Company Number: HR-ASTELLAS-2019US021655

PATIENT
  Age: 64 Year
  Sex: Female

DRUGS (1)
  1. TACROLIMUS SYSTEMIC [Suspect]
     Active Substance: TACROLIMUS
     Indication: RENAL TRANSPLANT
     Dosage: UNK, UNKNOWN FREQ.
     Route: 065

REACTIONS (6)
  - Hypokalaemia [Unknown]
  - Metabolic acidosis [Unknown]
  - Hypocalcaemia [Recovering/Resolving]
  - Normochromic normocytic anaemia [Unknown]
  - Renal impairment [Unknown]
  - Hypomagnesaemia [Not Recovered/Not Resolved]
